FAERS Safety Report 12510223 (Version 2)
Quarter: 2016Q3

REPORT INFORMATION
  Report Type: Report from Study
  Country: PL (occurrence: PL)
  Receive Date: 20160629
  Receipt Date: 20160809
  Transmission Date: 20161109
  Serious: Yes (Other)
  Sender: FDA-Public Use
  Company Number: PL-ABBVIE-16P-129-1583098-00

PATIENT
  Age: 82 Year
  Sex: Female
  Weight: 55 kg

DRUGS (5)
  1. MODERIBA [Suspect]
     Active Substance: RIBAVIRIN
     Indication: CHRONIC HEPATITIS C
     Route: 048
     Dates: start: 20160201, end: 20160229
  2. EXVIERA [Suspect]
     Active Substance: DASABUVIR
     Indication: CHRONIC HEPATITIS C
     Route: 048
     Dates: start: 20160201, end: 20160425
  3. AMLODIPINE [Concomitant]
     Active Substance: AMLODIPINE BESYLATE
     Indication: HYPERTENSION
     Route: 048
     Dates: start: 2012
  4. VIEKIRAX [Suspect]
     Active Substance: OMBITASVIR\PARITAPREVIR\RITONAVIR
     Indication: CHRONIC HEPATITIS C
     Route: 048
     Dates: start: 20160201, end: 20160425
  5. MODERIBA [Suspect]
     Active Substance: RIBAVIRIN
     Dosage: 2 TIMES A DAY
     Route: 048
     Dates: start: 20160229, end: 20160424

REACTIONS (3)
  - Anaemia [Recovered/Resolved]
  - Hepatocellular carcinoma [Not Recovered/Not Resolved]
  - Blood bilirubin decreased [Unknown]

NARRATIVE: CASE EVENT DATE: 20160229
